FAERS Safety Report 11074034 (Version 2)
Quarter: 2015Q2

REPORT INFORMATION
  Report Type: Spontaneous
  Country: CN (occurrence: CN)
  Receive Date: 20150429
  Receipt Date: 20150505
  Transmission Date: 20150821
  Serious: Yes (Other)
  Sender: FDA-Public Use
  Company Number: CN-ASTRAZENECA-2015SE39305

PATIENT
  Sex: Female

DRUGS (5)
  1. FASLODEX [Suspect]
     Active Substance: FULVESTRANT
     Dosage: 1 VIAL (0.25G/ML) EACH BUTTOCK; 500 MG ONCE
     Route: 030
     Dates: start: 20150402
  2. EXEMESTANE. [Concomitant]
     Active Substance: EXEMESTANE
  3. ARIMIDEX [Concomitant]
     Active Substance: ANASTROZOLE
  4. FEMARA [Concomitant]
     Active Substance: LETROZOLE
  5. EVEROLIMUS [Concomitant]
     Active Substance: EVEROLIMUS

REACTIONS (6)
  - Cataract [Unknown]
  - Vision blurred [Unknown]
  - Asthenia [Unknown]
  - Weight decreased [Unknown]
  - Cerebral infarction [Unknown]
  - Decreased appetite [Unknown]

NARRATIVE: CASE EVENT DATE: 201504
